FAERS Safety Report 24148462 (Version 5)
Quarter: 2025Q1

REPORT INFORMATION
  Report Type: Spontaneous
  Country: US (occurrence: US)
  Receive Date: 20240729
  Receipt Date: 20250127
  Transmission Date: 20250409
  Serious: No
  Sender: PFIZER
  Company Number: US-PFIZER INC-PV202400097773

PATIENT
  Age: 65 Year
  Sex: Female

DRUGS (5)
  1. XELJANZ [Suspect]
     Active Substance: TOFACITINIB CITRATE
     Indication: Rheumatoid arthritis
     Dates: start: 2022
  2. XELJANZ [Suspect]
     Active Substance: TOFACITINIB CITRATE
     Dosage: 5 MG, DAILY
     Route: 048
     Dates: start: 2023
  3. XELJANZ [Suspect]
     Active Substance: TOFACITINIB CITRATE
     Dosage: 5 MG, 2X/DAY
     Route: 048
     Dates: end: 202501
  4. HYDROXYCHLOROQUINE [Suspect]
     Active Substance: HYDROXYCHLOROQUINE
     Dates: start: 2023
  5. METHOTREXATE [Concomitant]
     Active Substance: METHOTREXATE

REACTIONS (13)
  - Drug ineffective [Unknown]
  - Condition aggravated [Unknown]
  - Rash [Not Recovered/Not Resolved]
  - Impaired healing [Unknown]
  - Toothache [Unknown]
  - Drug hypersensitivity [Unknown]
  - Rash erythematous [Recovered/Resolved]
  - Arthralgia [Unknown]
  - Peripheral swelling [Unknown]
  - Product dose omission in error [Unknown]
  - Insomnia [Unknown]
  - Vomiting [Unknown]
  - Chills [Unknown]

NARRATIVE: CASE EVENT DATE: 20230101
